FAERS Safety Report 14494677 (Version 1)
Quarter: 2018Q1

REPORT INFORMATION
  Report Type: Spontaneous
  Country: IT (occurrence: IT)
  Receive Date: 20180206
  Receipt Date: 20180206
  Transmission Date: 20180509
  Serious: Yes (Other)
  Sender: FDA-Public Use
  Company Number: IT-TEVA-2018-IT-852556

PATIENT
  Age: 83 Year
  Sex: Female

DRUGS (4)
  1. QUETIAPINA TEVA 25 MG [Suspect]
     Active Substance: QUETIAPINE
     Indication: SENILE DEMENTIA
     Route: 048
     Dates: start: 20150101, end: 20171210
  2. PANTOPRAZOLE SODIUM SESQUIHYDRATE [Concomitant]
     Active Substance: PANTOPRAZOLE SODIUM
     Route: 048
  3. TRITTICO 75 MG [Suspect]
     Active Substance: TRAZODONE HYDROCHLORIDE
     Indication: SENILE DEMENTIA
     Route: 048
     Dates: start: 20150101, end: 20171211
  4. CARDIOASPIRIN 100 MG [Concomitant]
     Active Substance: ASPIRIN
     Route: 048

REACTIONS (2)
  - Presyncope [Recovered/Resolved]
  - Vertigo [Recovered/Resolved]

NARRATIVE: CASE EVENT DATE: 20171210
